FAERS Safety Report 19590817 (Version 1)
Quarter: 2021Q3

REPORT INFORMATION
  Report Type: Spontaneous
  Country: US (occurrence: US)
  Receive Date: 20210721
  Receipt Date: 20210721
  Transmission Date: 20211014
  Serious: No
  Sender: FDA-Public Use
  Company Number: US-LUNDBECK-DKLU3035171

PATIENT
  Age: 52 Year
  Sex: Female
  Weight: 122 kg

DRUGS (1)
  1. VYEPTI [Suspect]
     Active Substance: EPTINEZUMAB-JJMR
     Indication: MIGRAINE
     Route: 041
     Dates: start: 20210407

REACTIONS (2)
  - Therapeutic response shortened [Not Recovered/Not Resolved]
  - Therapeutic response decreased [Not Recovered/Not Resolved]
